FAERS Safety Report 7110179-9 (Version None)
Quarter: 2010Q4

REPORT INFORMATION
  Report Type: 
  Country: None (occurrence: None)
  Receive Date: 20101112
  Receipt Date: 20101027
  Transmission Date: 20110411
  Serious: Yes (Hospitalization)
  Sender: FDA-Public Use
  Company Number: 1-18185384

PATIENT
  Age: 62 Year
  Sex: Female
  Weight: 108.8633 kg

DRUGS (25)
  1. QUININE SULFATE [Suspect]
     Indication: MUSCLE SPASMS
     Dosage: AS NEEDED, ORAL
     Route: 048
     Dates: start: 20040414, end: 20050526
  2. QUININE 260 MG (IVAX/TEVA) [Suspect]
     Indication: MUSCLE SPASMS
     Dosage: AS NEEDED, ORAL
     Route: 048
     Dates: start: 20060417
  3. QUININE 325 MG (IVAX/TEVA) [Suspect]
     Indication: MUSCLE SPASMS
     Dosage: AS NEEDED, ORAL
     Route: 048
     Dates: start: 20070105, end: 20071118
  4. METFORMIN [Concomitant]
  5. NADOLOL [Concomitant]
  6. LASIX [Concomitant]
  7. BACTRIM [Concomitant]
  8. ACTOS [Concomitant]
  9. PREVACID [Concomitant]
  10. TRAZODONE [Concomitant]
  11. CHLORTHALIDONE [Concomitant]
  12. LIPITOR [Concomitant]
  13. LISINOPRIL [Concomitant]
  14. DICLOFENAC [Concomitant]
  15. PRILOSEC [Concomitant]
  16. WELCHOL [Concomitant]
  17. CENTRUM SILVER [Concomitant]
  18. FISH OIL [Concomitant]
  19. POTASSIUM CHLORIDE [Concomitant]
  20. MULTI-VITAMIN [Concomitant]
  21. CITRUCEL [Concomitant]
  22. CITRACAL + D [Concomitant]
  23. VITAMIN E [Concomitant]
  24. MILK THISTLE [Concomitant]
  25. VITAMIN K TAB [Concomitant]

REACTIONS (22)
  - ANAEMIA [None]
  - ARTHRITIS [None]
  - ASTHENIA [None]
  - CHEST PAIN [None]
  - DIZZINESS [None]
  - DRUG HYPERSENSITIVITY [None]
  - EMOTIONAL DISTRESS [None]
  - GASTROINTESTINAL HAEMORRHAGE [None]
  - GASTROOESOPHAGEAL REFLUX DISEASE [None]
  - HAEMATURIA [None]
  - HEPATIC CIRRHOSIS [None]
  - HYPERTENSION [None]
  - HYPOGLYCAEMIA [None]
  - MALAISE [None]
  - MENTAL STATUS CHANGES [None]
  - NEPHROPATHY [None]
  - PAIN [None]
  - RENAL FAILURE ACUTE [None]
  - SYNCOPE [None]
  - THROMBOCYTOPENIA [None]
  - UNEVALUABLE EVENT [None]
  - URINARY TRACT INFECTION [None]
